FAERS Safety Report 22038076 (Version 1)
Quarter: 2023Q1

REPORT INFORMATION
  Report Type: Spontaneous
  Country: US (occurrence: US)
  Receive Date: 20230227
  Receipt Date: 20230227
  Transmission Date: 20230417
  Serious: No
  Sender: FDA-Public Use
  Company Number: US-IGSA-BIG0017893

PATIENT
  Age: 74 Year
  Sex: Female
  Weight: 101 kg

DRUGS (31)
  1. PROLASTIN-C LIQUID [Suspect]
     Active Substance: .ALPHA.1-PROTEINASE INHIBITOR HUMAN
     Indication: Alpha-1 antitrypsin deficiency
     Dosage: 6036 MILLIGRAM, Q.WK.
     Route: 042
     Dates: start: 20220217
  2. PROLASTIN-C LIQUID [Suspect]
     Active Substance: .ALPHA.1-PROTEINASE INHIBITOR HUMAN
     Dosage: 6036 MILLIGRAM, Q.WK.
     Route: 042
     Dates: start: 20190627
  3. SINGULAIR [Concomitant]
     Active Substance: MONTELUKAST SODIUM
  4. XOPENEX HFA [Concomitant]
     Active Substance: LEVALBUTEROL TARTRATE
  5. SYMBICORT [Concomitant]
     Active Substance: BUDESONIDE\FORMOTEROL FUMARATE DIHYDRATE
  6. SEEBRI NEOHALER [Concomitant]
     Active Substance: GLYCOPYRROLATE
  7. GUAIFENESIN [Concomitant]
     Active Substance: GUAIFENESIN
  8. AZITHROMYCIN [Concomitant]
     Active Substance: AZITHROMYCIN
  9. AMLODIPINE [Concomitant]
     Active Substance: AMLODIPINE BESYLATE
  10. ARMOUR THYROID [Concomitant]
     Active Substance: THYROID, PORCINE
  11. BACLOFEN [Concomitant]
     Active Substance: BACLOFEN
  12. CALCIUM [Concomitant]
     Active Substance: CALCIUM
  13. CITALOPRAM [Concomitant]
     Active Substance: CITALOPRAM HYDROBROMIDE
  14. CYANOCOBALAMIN [Concomitant]
     Active Substance: CYANOCOBALAMIN
  15. CRESTOR [Concomitant]
     Active Substance: ROSUVASTATIN CALCIUM
  16. CORTISONE [Concomitant]
     Active Substance: CORTISONE
  17. ARICEPT [Concomitant]
     Active Substance: DONEPEZIL HYDROCHLORIDE
  18. ELIQUIS [Concomitant]
     Active Substance: APIXABAN
  19. FENTANYL [Concomitant]
     Active Substance: FENTANYL
  20. FLONASE [Concomitant]
     Active Substance: FLUTICASONE PROPIONATE
  21. IRON [Concomitant]
     Active Substance: IRON
  22. LASIX [Concomitant]
     Active Substance: FUROSEMIDE
  23. LIDOCAINE [Concomitant]
     Active Substance: LIDOCAINE
  24. ALBUTEROL [Concomitant]
     Active Substance: ALBUTEROL
  25. LOSARTAN [Concomitant]
     Active Substance: LOSARTAN
  26. MAGNESIUM [Concomitant]
     Active Substance: MAGNESIUM
  27. RECLAST [Concomitant]
     Active Substance: ZOLEDRONIC ACID
  28. OXYCODONE [Concomitant]
     Active Substance: OXYCODONE
  29. PROBIOTICS NOS [Concomitant]
     Active Substance: PROBIOTICS NOS
  30. NITROGLYCERIN [Concomitant]
     Active Substance: NITROGLYCERIN
  31. NAMENDA XR [Concomitant]
     Active Substance: MEMANTINE HYDROCHLORIDE

REACTIONS (2)
  - Product storage error [Recovered/Resolved]
  - Diarrhoea [Not Recovered/Not Resolved]

NARRATIVE: CASE EVENT DATE: 20220217
